FAERS Safety Report 6599509-4 (Version None)
Quarter: 2010Q1

REPORT INFORMATION
  Report Type: 
  Country: None (occurrence: None)
  Receive Date: 20100217
  Receipt Date: 20100204
  Transmission Date: 20100710
  Serious: Yes (Hospitalization)
  Sender: FDA-Public Use
  Company Number: 235557J09USA

PATIENT
  Age: 23 Year
  Sex: Female

DRUGS (7)
  1. REBIF [Suspect]
     Indication: MULTIPLE SCLEROSIS
     Dosage: 44 MCG, 3 IN 1 WEEKS, SUBCUTANEOUS ; 44 MCG, 3 IN 1 WEEKS, SUBCUTANEOUS
     Route: 058
     Dates: start: 20091105, end: 20100101
  2. REBIF [Suspect]
     Indication: MULTIPLE SCLEROSIS
     Dosage: 44 MCG, 3 IN 1 WEEKS, SUBCUTANEOUS ; 44 MCG, 3 IN 1 WEEKS, SUBCUTANEOUS
     Route: 058
     Dates: start: 20100101
  3. CALCIUM PLUS VITAMIN D (CALCIUM D /01272001/) [Concomitant]
  4. MULTIVITAMIN (MULTIVITAMIN /00831701/) [Concomitant]
  5. CELEXA [Concomitant]
  6. NEURONTIN [Concomitant]
  7. ZANAFLEX [Concomitant]

REACTIONS (7)
  - DEPRESSION [None]
  - DYSPHAGIA [None]
  - ENCEPHALOMYELITIS [None]
  - ESCHERICHIA URINARY TRACT INFECTION [None]
  - PARALYSIS [None]
  - URINARY INCONTINENCE [None]
  - VIRAL INFECTION [None]
